FAERS Safety Report 9341535 (Version 4)
Quarter: 2013Q3

REPORT INFORMATION
  Report Type: Report from Study
  Country: US (occurrence: US)
  Receive Date: 20130611
  Receipt Date: 20130808
  Transmission Date: 20140515
  Serious: Yes (Death, Hospitalization)
  Sender: FDA-Public Use
  Company Number: US-CELGENEUS-163-21880-13050608

PATIENT
  Age: 73 Year
  Sex: Female
  Weight: 79.9 kg

DRUGS (30)
  1. REVLIMID [Suspect]
     Indication: MYELODYSPLASTIC SYNDROME
     Dosage: 50 MILLIGRAM
     Route: 048
     Dates: start: 20130424, end: 20130501
  2. CALCIUM [Concomitant]
     Indication: PRODUCT USED FOR UNKNOWN INDICATION
     Route: 065
     Dates: start: 2008
  3. VITAMIN E [Concomitant]
     Indication: NUTRITIONAL SUPPLEMENTATION
     Dosage: 400 UNITS
     Route: 048
     Dates: start: 2008
  4. SYNTHROID [Concomitant]
     Indication: HYPOTHYROIDISM
     Dosage: 75 MICROGRAM
     Route: 048
     Dates: start: 2008
  5. SYNTHROID [Concomitant]
     Dosage: .05 MILLIGRAM
     Route: 048
     Dates: start: 2008
  6. LISINOPRIL [Concomitant]
     Indication: HYPERTENSION
     Dosage: 10 MILLIGRAM
     Route: 048
     Dates: start: 2008
  7. METFORMIN [Concomitant]
     Indication: DIABETES MELLITUS
     Dosage: 2000 MILLIGRAM
     Route: 048
     Dates: start: 201210
  8. JANUVIA [Concomitant]
     Indication: DIABETES MELLITUS
     Dosage: 100 MILLIGRAM
     Route: 048
     Dates: start: 201301
  9. PRAVASTATIN [Concomitant]
     Indication: VENOUS STENOSIS
     Dosage: 90 MILLIGRAM
     Route: 048
     Dates: start: 201211
  10. CELEBREX [Concomitant]
     Indication: ARTHRALGIA
     Dosage: 200 MILLIGRAM
     Route: 048
     Dates: start: 1982
  11. ATIVAN [Concomitant]
     Indication: PRODUCT USED FOR UNKNOWN INDICATION
     Dosage: 3 MILLIGRAM
     Route: 048
  12. NEXIUM [Concomitant]
     Indication: PRODUCT USED FOR UNKNOWN INDICATION
     Dosage: 40 MILLIGRAM
     Route: 048
  13. POTASSIUM CHLORIDE [Concomitant]
     Indication: PRODUCT USED FOR UNKNOWN INDICATION
     Dosage: 10 MILLIGRAM
     Route: 048
  14. PROCHLORPERAZINE [Concomitant]
     Indication: PRODUCT USED FOR UNKNOWN INDICATION
     Dosage: 40 MILLIGRAM
     Route: 065
  15. QUINAPRIL [Concomitant]
     Indication: PRODUCT USED FOR UNKNOWN INDICATION
     Dosage: 10 MILLIGRAM
     Route: 065
  16. ZOLOFT [Concomitant]
     Indication: PRODUCT USED FOR UNKNOWN INDICATION
     Dosage: 100 MILLIGRAM
     Route: 065
  17. TYLENOL [Concomitant]
     Indication: PRODUCT USED FOR UNKNOWN INDICATION
     Route: 065
  18. KLOR-CON [Concomitant]
     Indication: PRODUCT USED FOR UNKNOWN INDICATION
     Route: 065
  19. SERTRALINE [Concomitant]
     Indication: PRODUCT USED FOR UNKNOWN INDICATION
     Route: 065
  20. ACYCLOVIR [Concomitant]
     Indication: HERPES SIMPLEX
     Dosage: 2400 MILLIGRAM
     Route: 048
     Dates: start: 20130503, end: 20130513
  21. PHENERGAN [Concomitant]
     Indication: PRODUCT USED FOR UNKNOWN INDICATION
     Route: 065
  22. ACE INHIBITOR [Concomitant]
     Indication: PRODUCT USED FOR UNKNOWN INDICATION
     Route: 065
  23. CARDIZEM [Concomitant]
     Indication: ATRIAL FIBRILLATION
     Route: 041
  24. CARDIZEM [Concomitant]
     Route: 048
     Dates: end: 20130513
  25. BETA-BLOCKER [Concomitant]
     Indication: ATRIAL FIBRILLATION
     Route: 048
  26. SALINE [Concomitant]
     Indication: HYPOTENSION
     Route: 041
  27. ATROPINE [Concomitant]
     Indication: HYPOTENSION
     Route: 041
     Dates: start: 20130513, end: 20130513
  28. ATROPINE [Concomitant]
     Indication: BRADYCARDIA
  29. MICRO K [Concomitant]
     Indication: NUTRITIONAL SUPPLEMENTATION
     Dosage: 20 MILLIEQUIVALENTS
     Route: 048
     Dates: start: 2003
  30. CALCIUM SUPPLEMENT [Concomitant]
     Indication: MINERAL SUPPLEMENTATION
     Dosage: 1
     Route: 048
     Dates: start: 2008

REACTIONS (2)
  - Lung infection [Fatal]
  - Leukaemia [Fatal]
